FAERS Safety Report 21232440 (Version 1)
Quarter: 2022Q3

REPORT INFORMATION
  Report Type: Spontaneous
  Country: US (occurrence: None)
  Receive Date: 20220818
  Receipt Date: 20220818
  Transmission Date: 20221027
  Serious: No
  Sender: FDA-Public Use
  Company Number: None

PATIENT
  Sex: Male
  Weight: 89.81 kg

DRUGS (27)
  1. ABIRATERONE ACETATE [Suspect]
     Active Substance: ABIRATERONE ACETATE
     Indication: Prostate cancer
     Dosage: FREQUENCY : DAILY;?
     Route: 048
  2. ASPIRIN [Concomitant]
     Active Substance: ASPIRIN
  3. Benadryl Allergy and Cold [Concomitant]
  4. BICALUTAMIDE [Concomitant]
     Active Substance: BICALUTAMIDE
  5. CALCIUM [Concomitant]
     Active Substance: CALCIUM
  6. CYCLOBENZAPRINE [Concomitant]
     Active Substance: CYCLOBENZAPRINE
  7. ELIGARD [Concomitant]
     Active Substance: LEUPROLIDE ACETATE
  8. FAMOTIDINE [Concomitant]
     Active Substance: FAMOTIDINE
  9. GLUCOSAMINE [Concomitant]
     Active Substance: GLUCOSAMINE
  10. GUAIFENESIN [Concomitant]
     Active Substance: GUAIFENESIN
  11. IBUPROFEN [Concomitant]
     Active Substance: IBUPROFEN
  12. LEVALBUTEROL [Concomitant]
     Active Substance: LEVALBUTEROL
  13. LEVOTHYROXINE [Concomitant]
     Active Substance: LEVOTHYROXINE
  14. LISINOPRIL [Concomitant]
     Active Substance: LISINOPRIL
  15. MIRALAX [Concomitant]
     Active Substance: POLYETHYLENE GLYCOL 3350
  16. MUCINEX ALLERGY [Concomitant]
     Active Substance: FEXOFENADINE HYDROCHLORIDE
  17. OMEPRAZOLE [Concomitant]
     Active Substance: OMEPRAZOLE
  18. OXYCODONE [Concomitant]
     Active Substance: OXYCODONE
  19. PREDNISONE [Concomitant]
     Active Substance: PREDNISONE
  20. SENNA [Concomitant]
     Active Substance: SENNA LEAF\SENNOSIDES\SENNOSIDES A AND B
  21. SIMVASTATIN [Concomitant]
     Active Substance: SIMVASTATIN
  22. STOOL SOFTENER (DOCUSATE) [Concomitant]
     Active Substance: DOCUSATE
  23. TAMSULOSIN [Concomitant]
     Active Substance: TAMSULOSIN
  24. TOPROL XL [Concomitant]
     Active Substance: METOPROLOL SUCCINATE
  25. TYLENOL [Concomitant]
     Active Substance: ACETAMINOPHEN
  26. Vitamin B complex combinations [Concomitant]
  27. VITAMIN E [Concomitant]
     Active Substance: .ALPHA.-TOCOPHEROL

REACTIONS (2)
  - Drug intolerance [None]
  - Inappropriate antidiuretic hormone secretion [None]
